FAERS Safety Report 4889724-X (Version None)
Quarter: 2006Q1

REPORT INFORMATION
  Report Type: 
  Country: None (occurrence: None)
  Receive Date: 20060120
  Receipt Date: 20060109
  Transmission Date: 20060701
  Serious: Yes (Hospitalization)
  Sender: FDA-Public Use
  Company Number: 2006-137190-NL

PATIENT
  Age: 30 Year
  Sex: Male

DRUGS (11)
  1. MIRTAZAPINE [Suspect]
     Dosage: 300 MG QD, ORAL
     Route: 048
     Dates: start: 20051112, end: 20051112
  2. ATROPINE [Suspect]
     Indication: ABNORMAL BEHAVIOUR
     Dosage: 1 DF, INTRAVENOUS BOLUS
     Route: 040
     Dates: start: 20051112, end: 20051112
  3. ATROPINE [Suspect]
     Indication: DRUG DEPENDENCE
     Dosage: 1 DF, INTRAVENOUS BOLUS
     Route: 040
     Dates: start: 20051112, end: 20051112
  4. ATROPINE [Suspect]
     Indication: MENTAL DISORDER
     Dosage: 1 DF, INTRAVENOUS BOLUS
     Route: 040
     Dates: start: 20051112, end: 20051112
  5. COCAINE [Suspect]
     Indication: ABNORMAL BEHAVIOUR
     Dosage: 1 DF, INTRAVENOUS BOLUS
     Route: 040
     Dates: start: 20051112, end: 20051112
  6. COCAINE [Suspect]
     Indication: DRUG DEPENDENCE
     Dosage: 1 DF, INTRAVENOUS BOLUS
     Route: 040
     Dates: start: 20051112, end: 20051112
  7. COCAINE [Suspect]
     Indication: MENTAL DISORDER
     Dosage: 1 DF, INTRAVENOUS BOLUS
     Route: 040
     Dates: start: 20051112, end: 20051112
  8. CLOTIAPINE [Concomitant]
  9. METHADONE [Concomitant]
  10. BENZODIAZEPINE [Concomitant]
  11. CANNABIS [Concomitant]

REACTIONS (11)
  - ACCIDENTAL OVERDOSE [None]
  - AGITATION [None]
  - BODY TEMPERATURE INCREASED [None]
  - CONFUSIONAL STATE [None]
  - DISORIENTATION [None]
  - HALLUCINATION, VISUAL [None]
  - INCORRECT ROUTE OF DRUG ADMINISTRATION [None]
  - INTENTIONAL OVERDOSE [None]
  - LONG QT SYNDROME [None]
  - POLYSUBSTANCE ABUSE [None]
  - TACHYCARDIA [None]
